FAERS Safety Report 13375930 (Version 2)
Quarter: 2017Q2

REPORT INFORMATION
  Report Type: Spontaneous
  Country: FR (occurrence: FR)
  Receive Date: 20170328
  Receipt Date: 20170421
  Transmission Date: 20170830
  Serious: Yes (Other)
  Sender: FDA-Public Use
  Company Number: FR-ACTELION-A-CH2017-151330

PATIENT
  Age: 44 Year
  Sex: Female

DRUGS (17)
  1. PARACETAMOL [Concomitant]
     Active Substance: ACETAMINOPHEN
     Indication: PRODUCT USED FOR UNKNOWN INDICATION
  2. TRACLEER [Suspect]
     Active Substance: BOSENTAN
     Dosage: UNK
     Route: 048
     Dates: start: 201610, end: 201611
  3. SPECIAFOLDINE [Concomitant]
     Active Substance: FOLIC ACID
     Indication: PRODUCT USED FOR UNKNOWN INDICATION
  4. AMLODIPINE [Concomitant]
     Active Substance: AMLODIPINE BESYLATE
     Indication: PRODUCT USED FOR UNKNOWN INDICATION
  5. TARDYFERON B9 [Concomitant]
     Active Substance: FERROUS SULFATE\FOLIC ACID
     Indication: PRODUCT USED FOR UNKNOWN INDICATION
  6. TAHOR [Concomitant]
     Active Substance: ATORVASTATIN CALCIUM
     Indication: PRODUCT USED FOR UNKNOWN INDICATION
     Dosage: 10 MG, UNK
  7. CAPTOPRIL. [Suspect]
     Active Substance: CAPTOPRIL
     Indication: PRODUCT USED FOR UNKNOWN INDICATION
     Dosage: 50 MG, UNK
     Route: 048
     Dates: start: 201610, end: 201611
  8. KEPPRA [Suspect]
     Active Substance: LEVETIRACETAM
     Indication: DRUG PRESCRIBING ERROR
     Dosage: UNK
     Route: 065
     Dates: start: 20170124, end: 20170223
  9. ADEPAL [Suspect]
     Active Substance: ETHINYL ESTRADIOL\LEVONORGESTREL
     Indication: DRUG PRESCRIBING ERROR
     Dosage: UNK
     Route: 048
     Dates: start: 20170124, end: 20170223
  10. TRACLEER [Suspect]
     Active Substance: BOSENTAN
     Indication: PRODUCT USED FOR UNKNOWN INDICATION
     Dosage: 62.5 MG, BID
     Route: 048
     Dates: start: 20170130, end: 20170223
  11. TRACLEER [Suspect]
     Active Substance: BOSENTAN
     Dosage: 5 UNK, UNK
     Route: 048
  12. LAMICTAL [Suspect]
     Active Substance: LAMOTRIGINE
     Indication: DRUG PRESCRIBING ERROR
     Route: 065
  13. KARDEGIC [Concomitant]
     Active Substance: ASPIRIN LYSINE
     Indication: PRODUCT USED FOR UNKNOWN INDICATION
  14. CAPTOPRIL. [Suspect]
     Active Substance: CAPTOPRIL
     Dosage: 50 MG, UNK
     Route: 048
     Dates: start: 20170120, end: 20170223
  15. CAPTOPRIL. [Suspect]
     Active Substance: CAPTOPRIL
     Dosage: UNK
     Route: 048
  16. ESOMEPRAZOLE [Concomitant]
     Active Substance: ESOMEPRAZOLE
     Indication: PRODUCT USED FOR UNKNOWN INDICATION
  17. ILOMEDINE [Concomitant]
     Active Substance: ILOPROST TROMETHAMINE
     Indication: RAYNAUD^S PHENOMENON
     Dosage: 0.1
     Route: 042
     Dates: start: 20170124, end: 20170129

REACTIONS (7)
  - Livedo reticularis [Unknown]
  - Stevens-Johnson syndrome [Unknown]
  - Cheilitis [Unknown]
  - Periorbital oedema [Unknown]
  - Lip ulceration [Unknown]
  - Erythema [Unknown]
  - Rash [Unknown]

NARRATIVE: CASE EVENT DATE: 20170206
